FAERS Safety Report 16211179 (Version 7)
Quarter: 2019Q4

REPORT INFORMATION
  Report Type: Spontaneous
  Country: AU (occurrence: AU)
  Receive Date: 20190418
  Receipt Date: 20191210
  Transmission Date: 20200122
  Serious: Yes (Hospitalization)
  Sender: FDA-Public Use
  Company Number: AU-BIOGEN-2019BI00711515

PATIENT
  Age: 34 Year
  Sex: Female

DRUGS (5)
  1. PANADOL [Concomitant]
     Active Substance: ACETAMINOPHEN
     Indication: PRODUCT USED FOR UNKNOWN INDICATION
     Route: 065
  2. TYSABRI [Suspect]
     Active Substance: NATALIZUMAB
     Indication: MULTIPLE SCLEROSIS
     Dosage: INFUSED OVER 1 HOUR
     Route: 042
     Dates: start: 20190308
  3. CORTISONE [Suspect]
     Active Substance: CORTISONE
     Indication: PRODUCT USED FOR UNKNOWN INDICATION
     Route: 065
  4. VITAMIN D [Concomitant]
     Active Substance: VITAMIN D NOS
     Indication: PRODUCT USED FOR UNKNOWN INDICATION
     Route: 065
  5. ZOLOFT [Concomitant]
     Active Substance: SERTRALINE HYDROCHLORIDE
     Indication: PRODUCT USED FOR UNKNOWN INDICATION
     Route: 065

REACTIONS (29)
  - Initial insomnia [Unknown]
  - Dizziness [Unknown]
  - Paraesthesia [Not Recovered/Not Resolved]
  - Stress [Recovered/Resolved]
  - Emotional distress [Recovered/Resolved]
  - Abdominal discomfort [Not Recovered/Not Resolved]
  - Tooth abscess [Unknown]
  - Skin warm [Unknown]
  - Tinnitus [Not Recovered/Not Resolved]
  - Abdominal pain upper [Unknown]
  - Oral discomfort [Unknown]
  - Panic reaction [Recovered/Resolved]
  - Muscle tightness [Not Recovered/Not Resolved]
  - Diarrhoea [Not Recovered/Not Resolved]
  - Nausea [Not Recovered/Not Resolved]
  - Fatigue [Not Recovered/Not Resolved]
  - Blindness unilateral [Not Recovered/Not Resolved]
  - Body temperature increased [Unknown]
  - Paranasal sinus discomfort [Not Recovered/Not Resolved]
  - Pharyngitis [Not Recovered/Not Resolved]
  - Diplopia [Not Recovered/Not Resolved]
  - Drug resistance [Unknown]
  - Multiple sclerosis relapse [Recovered/Resolved]
  - Tooth fracture [Unknown]
  - Neuralgia [Not Recovered/Not Resolved]
  - Somnolence [Recovered/Resolved]
  - Multiple sclerosis [Not Recovered/Not Resolved]
  - Lhermitte^s sign [Recovered/Resolved]
  - Headache [Not Recovered/Not Resolved]

NARRATIVE: CASE EVENT DATE: 20190308
